FAERS Safety Report 15095185 (Version 2)
Quarter: 2018Q3

REPORT INFORMATION
  Report Type: Report from Study
  Country: IT (occurrence: IT)
  Receive Date: 20180702
  Receipt Date: 20180817
  Transmission Date: 20181010
  Serious: Yes (Hospitalization)
  Sender: FDA-Public Use
  Company Number: IT-TEVA-2018-IT-919613

PATIENT
  Age: 78 Year
  Sex: Male

DRUGS (2)
  1. LEXOTAN 1,5 MG COMPRESSE [Suspect]
     Active Substance: BROMAZEPAM
     Indication: DRUG ABUSE
     Route: 048
     Dates: start: 20180428, end: 20180428
  2. CITALOPRAM [Suspect]
     Active Substance: CITALOPRAM HYDROBROMIDE
     Indication: DRUG ABUSE
     Route: 048
     Dates: start: 20180428, end: 20180428

REACTIONS (3)
  - Intentional self-injury [Recovered/Resolved]
  - Drug abuse [Recovered/Resolved]
  - Dysarthria [Recovered/Resolved]

NARRATIVE: CASE EVENT DATE: 20180428
